FAERS Safety Report 9236815 (Version 1)
Quarter: 2013Q2

REPORT INFORMATION
  Report Type: Spontaneous
  Country: FR (occurrence: FR)
  Receive Date: 20130417
  Receipt Date: 20130417
  Transmission Date: 20140414
  Serious: Yes (Other)
  Sender: FDA-Public Use
  Company Number: FR-UCBSA-083187

PATIENT
  Age: 74 Year
  Sex: Female

DRUGS (3)
  1. CIMZIA [Suspect]
     Indication: PSORIATIC ARTHROPATHY
     Route: 058
     Dates: start: 201301, end: 201302
  2. CIMZIA [Suspect]
     Indication: PSORIATIC ARTHROPATHY
     Dosage: NO OF DOSES RECEIVED-7
     Route: 058
     Dates: start: 20130408
  3. DICLOFENAC [Concomitant]

REACTIONS (8)
  - Psoriasis [Not Recovered/Not Resolved]
  - Acute sinusitis [Recovered/Resolved]
  - Bronchitis [Recovered/Resolved]
  - Diarrhoea [Recovered/Resolved]
  - Oral herpes [Recovered/Resolved]
  - Pain [Recovered/Resolved]
  - Tooth fracture [Recovered/Resolved]
  - Influenza [Recovered/Resolved]
